FAERS Safety Report 9381725 (Version 2)
Quarter: 2013Q3

REPORT INFORMATION
  Report Type: Spontaneous
  Country: CA (occurrence: CA)
  Receive Date: 20130703
  Receipt Date: 20130827
  Transmission Date: 20140515
  Serious: Yes (Other)
  Sender: FDA-Public Use
  Company Number: US-ASTELLAS-2013US006882

PATIENT
  Age: 57 Year
  Sex: Female
  Weight: 95 kg

DRUGS (7)
  1. MYRBETRIQ [Suspect]
     Indication: HYPERTONIC BLADDER
     Dosage: 25 MG, UID/QD
     Route: 048
     Dates: start: 20130520
  2. LORAZEPAM [Concomitant]
     Indication: ANTICOAGULANT THERAPY
     Dosage: 80 MG, UID/QD
     Route: 048
  3. FUROSEMIDE [Concomitant]
     Indication: DIURETIC THERAPY
     Dosage: 120 MG, UID/QD
     Route: 048
  4. CLONIDINE                          /00171102/ [Concomitant]
     Indication: PRODUCT USED FOR UNKNOWN INDICATION
     Dosage: 0.1 MG, UID/QD
     Route: 048
  5. IRBESARTAN [Concomitant]
     Indication: BLOOD PRESSURE
     Dosage: 300 MG, UID/QD
     Route: 048
  6. METFORMIN [Concomitant]
     Indication: DIABETES MELLITUS
     Dosage: 850 MG, UID/QD
     Route: 048
  7. HAPOFINOCIPERE [Concomitant]
     Indication: BLOOD CHOLESTEROL
     Dosage: 150 MG, UID/QD
     Route: 048

REACTIONS (5)
  - Fluid retention [Not Recovered/Not Resolved]
  - Cystoscopy [Unknown]
  - Blood pressure increased [Not Recovered/Not Resolved]
  - Blood test [Unknown]
  - Urine analysis [Unknown]
